FAERS Safety Report 17805681 (Version 2)
Quarter: 2020Q2

REPORT INFORMATION
  Report Type: Report from Study
  Country: CA (occurrence: CA)
  Receive Date: 20200519
  Receipt Date: 20200604
  Transmission Date: 20200714
  Serious: Yes (Death, Hospitalization)
  Sender: FDA-Public Use
  Company Number: CA-BIOGEN-2020BI00876051

PATIENT
  Age: 12 Year
  Sex: Male
  Weight: 33 kg

DRUGS (8)
  1. SPINRAZA [Suspect]
     Active Substance: NUSINERSEN
     Indication: SPINAL MUSCULAR ATROPHY
     Dosage: DAYS 0, 14, 28
     Route: 037
     Dates: start: 20161205, end: 2017
  2. SPINRAZA [Suspect]
     Active Substance: NUSINERSEN
     Route: 037
     Dates: start: 2017
  3. SPINRAZA [Suspect]
     Active Substance: NUSINERSEN
     Route: 037
     Dates: start: 20161205, end: 20200505
  4. ATROPINE. [Concomitant]
     Active Substance: ATROPINE
     Indication: PRODUCT USED FOR UNKNOWN INDICATION
     Dosage: WHILE AWAKE
     Route: 065
  5. CLAVULANIC [Concomitant]
     Indication: PRODUCT USED FOR UNKNOWN INDICATION
     Route: 065
  6. SALBUTAMOL [Concomitant]
     Active Substance: ALBUTEROL
     Indication: PRODUCT USED FOR UNKNOWN INDICATION
     Route: 065
  7. HYDROCORTISONE. [Concomitant]
     Active Substance: HYDROCORTISONE
     Indication: PRODUCT USED FOR UNKNOWN INDICATION
     Route: 061
  8. SPINRAZA [Suspect]
     Active Substance: NUSINERSEN
     Dosage: ONCE AT DAY 58
     Route: 037
     Dates: start: 2017, end: 2017

REACTIONS (2)
  - Cardiopulmonary failure [Fatal]
  - Septic shock [Unknown]

NARRATIVE: CASE EVENT DATE: 2020
